FAERS Safety Report 23280603 (Version 2)
Quarter: 2023Q4

REPORT INFORMATION
  Report Type: Spontaneous
  Country: RU (occurrence: None)
  Receive Date: 20231211
  Receipt Date: 20231221
  Transmission Date: 20240110
  Serious: Yes (Other)
  Sender: FDA-Public Use
  Company Number: RU-ROCHE-3469673

PATIENT
  Age: 48 Year
  Sex: Female

DRUGS (3)
  1. KADCYLA [Suspect]
     Active Substance: ADO-TRASTUZUMAB EMTANSINE
     Indication: HER2 positive breast cancer
     Dosage: 3.6 MG/KG = 241 MG LAST ADMINISTRATION ON 16/NOV/2023 ( 6TH ADMINISTRATION)
     Route: 041
     Dates: start: 20230728
  2. AMOXICILLIN\CLAVULANATE POTASSIUM [Concomitant]
     Active Substance: AMOXICILLIN\CLAVULANATE POTASSIUM
     Dosage: 1,000 MG X TWICE A DAY
     Dates: start: 20231201
  3. BUSERELIN [Concomitant]
     Active Substance: BUSERELIN

REACTIONS (5)
  - Pneumonia [Unknown]
  - Traumatic lung injury [Unknown]
  - Radiation pneumonitis [Unknown]
  - Dry skin [Unknown]
  - Respiratory tract infection viral [Unknown]

NARRATIVE: CASE EVENT DATE: 20231201
